FAERS Safety Report 8827051 (Version 3)
Quarter: 2012Q4

REPORT INFORMATION
  Report Type: 
  Country: US (occurrence: US)
  Receive Date: 20121005
  Receipt Date: 20121120
  Transmission Date: 20130627
  Serious: Yes (Death, Other)
  Sender: FDA-Public Use
  Company Number: US-B.I. PHARMACEUTICALS,INC./RIDGEFIELD-2012-BP-24350BP

PATIENT
  Age: 57 Year
  Sex: Male
  Weight: 85.28 kg

DRUGS (2)
  1. PRADAXA [Suspect]
     Indication: ATRIAL FLUTTER
     Dosage: 300 mg
     Route: 048
     Dates: start: 20120526
  2. LISINOPRIL [Concomitant]
     Indication: HYPERTENSION
     Route: 048

REACTIONS (2)
  - Cardio-respiratory arrest [Fatal]
  - Chest pain [Unknown]
